FAERS Safety Report 9680598 (Version 1)
Quarter: 2013Q4

REPORT INFORMATION
  Report Type: Spontaneous
  Country: US (occurrence: US)
  Receive Date: 20131111
  Receipt Date: 20131111
  Transmission Date: 20140711
  Serious: No
  Sender: FDA-Public Use
  Company Number: US-PFIZER INC-2013320758

PATIENT
  Age: 49 Year
  Sex: Female
  Weight: 64.4 kg

DRUGS (1)
  1. LYRICA [Suspect]
     Indication: PAIN
     Dosage: 75 MG, DAILY

REACTIONS (3)
  - Hypovitaminosis [Unknown]
  - Mineral deficiency [Unknown]
  - Hormone level abnormal [Unknown]
